FAERS Safety Report 7305327-1 (Version None)
Quarter: 2011Q1

REPORT INFORMATION
  Report Type: 
  Country: None (occurrence: None)
  Receive Date: 20110222
  Receipt Date: 20110208
  Transmission Date: 20110831
  Serious: Yes (Other)
  Sender: FDA-Public Use
  Company Number: PHHY2011CH10017

PATIENT
  Age: 71 Year
  Sex: Male

DRUGS (1)
  1. CLOZAPINE [Suspect]
     Dosage: 20 G, UNK
     Route: 048

REACTIONS (8)
  - APNOEA [None]
  - SOMNOLENCE [None]
  - DYSARTHRIA [None]
  - RESPIRATORY DEPRESSION [None]
  - TOXICITY TO VARIOUS AGENTS [None]
  - COMA [None]
  - AREFLEXIA [None]
  - ANTIPSYCHOTIC DRUG LEVEL INCREASED [None]
